FAERS Safety Report 12354175 (Version 1)
Quarter: 2016Q2

REPORT INFORMATION
  Report Type: Spontaneous
  Country: US (occurrence: US)
  Receive Date: 20160511
  Receipt Date: 20160511
  Transmission Date: 20160815
  Serious: No
  Sender: FDA-Public Use
  Company Number: US-BAYER-2016-090264

PATIENT
  Sex: Male
  Weight: 92.97 kg

DRUGS (7)
  1. NALTREXONE [Concomitant]
     Active Substance: NALTREXONE
  2. OMEGA 3 [Concomitant]
     Active Substance: OMEGA-3 FATTY ACIDS
  3. VITAMIN C [Concomitant]
     Active Substance: ASCORBIC ACID
  4. FINASTERIDE. [Concomitant]
     Active Substance: FINASTERIDE
  5. BACLOFEN. [Concomitant]
     Active Substance: BACLOFEN
  6. MIRALAX [Suspect]
     Active Substance: POLYETHYLENE GLYCOL 3350
     Indication: CONSTIPATION
     Dosage: 1 DF, UP TO 3 TIMES A DAY
     Route: 048
  7. SILODOSIN [Concomitant]
     Active Substance: SILODOSIN

REACTIONS (1)
  - Product use issue [None]
